FAERS Safety Report 6638116-1 (Version None)
Quarter: 2010Q1

REPORT INFORMATION
  Report Type: 
  Country: None (occurrence: None)
  Receive Date: 20100317
  Receipt Date: 20100119
  Transmission Date: 20100710
  Serious: Yes (Hospitalization)
  Sender: FDA-Public Use
  Company Number: US-NOVOPROD-303314

PATIENT
  Sex: Female
  Weight: 155 kg

DRUGS (16)
  1. NOVOLIN N INNOLET [Suspect]
     Indication: INSULIN-REQUIRING TYPE 2 DIABETES MELLITUS
     Dosage: UNK , BID
     Route: 058
  2. ATENOLOL [Concomitant]
     Indication: HEART RATE
     Dosage: 25 MG, UNK
     Route: 048
  3. VERAPAMIL                          /00014302/ [Concomitant]
     Indication: HYPERTENSION
     Dosage: 180 MG, UNK
     Route: 048
  4. PANTOPRAZOLE                       /01263202/ [Concomitant]
     Indication: GASTROOESOPHAGEAL REFLUX DISEASE
     Dosage: UNK
     Route: 048
  5. LASIX [Concomitant]
     Indication: FLUID RETENTION
     Dosage: UNK
     Route: 048
  6. ARAVA [Concomitant]
     Indication: ARTHRITIS
     Dosage: UNK
     Route: 048
  7. METHOTREXATE                       /00113802/ [Concomitant]
     Indication: ARTHRITIS
     Dosage: UNK
     Route: 048
  8. APO-PREDNISONE [Concomitant]
     Indication: DYSPNOEA
     Dosage: UNK
     Route: 048
  9. FOLIC ACID [Concomitant]
     Indication: PROPHYLAXIS
     Dosage: UNK
     Route: 048
  10. PLAQUENIL                          /00072601/ [Concomitant]
     Indication: ADVERSE DRUG REACTION
     Dosage: UNK
     Route: 048
  11. VITAMIN B6 [Concomitant]
     Indication: NEUROPATHY PERIPHERAL
     Dosage: UNK
     Route: 048
  12. VITAMIN A [Concomitant]
     Indication: RICKETS
     Dosage: UNK
  13. HUMALOG [Concomitant]
     Indication: DIABETES MELLITUS
     Dosage: UNK
     Route: 058
  14. GLYCOLAX [Concomitant]
     Indication: CONSTIPATION
     Dosage: PRN
     Route: 048
  15. IPRATROPIUM BROMIDE [Concomitant]
     Indication: WHEEZING
     Dosage: PRN
     Route: 055
  16. ALBUTEROL SULFATE AUTOHALER [Concomitant]
     Indication: WHEEZING
     Dosage: PRN
     Route: 055

REACTIONS (2)
  - POOR PERIPHERAL CIRCULATION [None]
  - TOE AMPUTATION [None]
